FAERS Safety Report 6596380-1 (Version None)
Quarter: 2010Q1

REPORT INFORMATION
  Report Type: 
  Country: None (occurrence: None)
  Receive Date: 20100222
  Receipt Date: 20100222
  Transmission Date: 20100710
  Serious: No
  Sender: FDA-Public Use
  Company Number: None

PATIENT
  Age: 79 Year
  Sex: Female

DRUGS (1)
  1. LOVENOX [Suspect]
     Indication: ATRIAL FIBRILLATION
     Dosage: 57 MG DAILY SUBCUTANEOUS
     Route: 058
     Dates: start: 20100123, end: 20100127

REACTIONS (1)
  - ECCHYMOSIS [None]
